FAERS Safety Report 12629486 (Version 1)
Quarter: 2016Q3

REPORT INFORMATION
  Report Type: Report from Study
  Country: US (occurrence: US)
  Receive Date: 20160808
  Receipt Date: 20160808
  Transmission Date: 20161109
  Serious: Yes (Other)
  Sender: FDA-Public Use
  Company Number: US-ROCHE-1089011

PATIENT
  Age: 33 Year
  Sex: Male
  Weight: 97.8 kg

DRUGS (3)
  1. VISMODEGIB [Suspect]
     Active Substance: VISMODEGIB
     Indication: EPITHELIOID SARCOMA
     Dosage: DATE OF LAST DRUG TAKEN PRIOR TO ONSET OF AE:09/NOV/2011
     Route: 048
     Dates: start: 20110927, end: 20111109
  2. RO 4929097 (GAMMA SECRETASE INHIBITOR) [Suspect]
     Active Substance: INVESTIGATIONAL PRODUCT
     Indication: EPITHELIOID SARCOMA
     Dosage: DATE OF LAST DRUG TAKEN PRIOR TO ONSET OF AE:09/NOV/2011
     Route: 048
     Dates: start: 20110927, end: 20110927
  3. RO 4929097 (GAMMA SECRETASE INHIBITOR) [Suspect]
     Active Substance: INVESTIGATIONAL PRODUCT
     Route: 048
     Dates: start: 20110928, end: 20111109

REACTIONS (3)
  - Lymphocyte count decreased [Unknown]
  - Neutrophil count decreased [Unknown]
  - White blood cell count decreased [Unknown]

NARRATIVE: CASE EVENT DATE: 20111122
